FAERS Safety Report 9194551 (Version 1)
Quarter: 2013Q1

REPORT INFORMATION
  Report Type: Spontaneous
  Country: US (occurrence: US)
  Receive Date: 20130327
  Receipt Date: 20130327
  Transmission Date: 20140127
  Serious: No
  Sender: FDA-Public Use
  Company Number: US-ALLERGAN-1207104US

PATIENT
  Age: 33 Year
  Sex: Female

DRUGS (1)
  1. LATISSE 0.03% [Suspect]
     Indication: GROWTH OF EYELASHES
     Dosage: 2 GTT, QHS
     Route: 061
     Dates: start: 20120515, end: 20120518

REACTIONS (6)
  - Blepharospasm [Recovered/Resolved]
  - Eyelid thickening [Recovered/Resolved]
  - Erythema [Recovered/Resolved]
  - Scleral hyperaemia [Recovered/Resolved]
  - Erythema of eyelid [Recovered/Resolved]
  - Vision blurred [Recovered/Resolved]
